FAERS Safety Report 8446495-8 (Version None)
Quarter: 2012Q2

REPORT INFORMATION
  Report Type: 
  Country: None (occurrence: None)
  Receive Date: 20120618
  Receipt Date: 20120423
  Transmission Date: 20120825
  Serious: No
  Sender: FDA-Public Use
  Company Number: US-TEVA-335094USA

PATIENT
  Sex: Female

DRUGS (5)
  1. ALPRAZOLAM [Concomitant]
     Indication: PANIC ATTACK
     Route: 048
  2. FENTANYL-100 [Concomitant]
     Indication: PAIN
     Dosage: 25 MICROGRAM;
     Route: 061
  3. ACTIQ [Suspect]
     Indication: PAIN
     Dosage: 400 MICROGRAM;
     Route: 002
     Dates: end: 20120101
  4. DULOXETINE HYDROCHLORIDE [Concomitant]
     Indication: DEPRESSION
     Dosage: 120 MILLIGRAM;
     Route: 048
  5. LEVOTHYROXINE SODIUM [Concomitant]
     Dosage: 50 MICROGRAM;
     Route: 048

REACTIONS (4)
  - EPISTAXIS [None]
  - NAUSEA [None]
  - PAIN [None]
  - VOMITING [None]
